FAERS Safety Report 5290927-3 (Version None)
Quarter: 2007Q2

REPORT INFORMATION
  Report Type: 
  Country: None (occurrence: None)
  Receive Date: 20070405
  Receipt Date: 20070405
  Transmission Date: 20071010
  Serious: Yes (Hospitalization)
  Sender: FDA-Public Use
  Company Number: None

PATIENT
  Sex: Female
  Weight: 77.1115 kg

DRUGS (1)
  1. RAPTIVA [Suspect]
     Indication: PSORIASIS
     Dosage: 0.6 ML   EVERY WEEK   SQ
     Route: 058
     Dates: start: 20061215, end: 20070228

REACTIONS (9)
  - CONDITION AGGRAVATED [None]
  - ERYTHEMA [None]
  - EYE SWELLING [None]
  - FEELING HOT [None]
  - INFLAMMATION [None]
  - LOCAL SWELLING [None]
  - PSORIASIS [None]
  - RASH [None]
  - SWELLING FACE [None]
